FAERS Safety Report 10441087 (Version 1)
Quarter: 2014Q3

REPORT INFORMATION
  Report Type: Spontaneous
  Country: US (occurrence: None)
  Receive Date: 20140908
  Receipt Date: 20140908
  Transmission Date: 20150326
  Serious: Yes (Life-Threatening, Hospitalization)
  Sender: FDA-Public Use
  Company Number: None

PATIENT
  Age: 32 Year
  Sex: Male
  Weight: 73.48 kg

DRUGS (2)
  1. PENTASA [Suspect]
     Active Substance: MESALAMINE
     Indication: CROHN^S DISEASE
     Dosage: 2 CAPSULES FOUR TIMES DAILY TAKEN BY MOUTH
     Route: 048
     Dates: start: 20140807, end: 20140904
  2. CANASA [Suspect]
     Active Substance: MESALAMINE
     Indication: CROHN^S DISEASE
     Dosage: 1 ONCE DAILY RECTAL
     Route: 054
     Dates: start: 20140807, end: 20140903

REACTIONS (1)
  - Pericarditis [None]

NARRATIVE: CASE EVENT DATE: 20140904
